FAERS Safety Report 14344884 (Version 1)
Quarter: 2018Q1

REPORT INFORMATION
  Report Type: Report from Study
  Country: US (occurrence: US)
  Receive Date: 20180103
  Receipt Date: 20180103
  Transmission Date: 20180509
  Serious: Yes (Death)
  Sender: FDA-Public Use
  Company Number: US-ASTRAZENECA-2018SE00305

PATIENT
  Sex: Female

DRUGS (3)
  1. SYNAGIS [Suspect]
     Active Substance: PALIVIZUMAB
     Indication: SWELLING
     Dosage: 15MG/KG, ONCE A MONTH
     Route: 030
     Dates: start: 20171213, end: 20171220
  2. SYNAGIS [Suspect]
     Active Substance: PALIVIZUMAB
     Indication: CONGENITAL AORTIC VALVE INCOMPETENCE
     Dosage: 15MG/KG, ONCE A MONTH
     Route: 030
     Dates: start: 20171213, end: 20171220
  3. SYNAGIS [Suspect]
     Active Substance: PALIVIZUMAB
     Indication: TRISOMY 18
     Dosage: 15MG/KG, ONCE A MONTH
     Route: 030
     Dates: start: 20171213, end: 20171220

REACTIONS (1)
  - Death [Fatal]

NARRATIVE: CASE EVENT DATE: 20171220
